FAERS Safety Report 5932283-0 (Version None)
Quarter: 2008Q4

REPORT INFORMATION
  Report Type: 
  Country: None (occurrence: None)
  Receive Date: 20081023
  Receipt Date: 20081009
  Transmission Date: 20090506
  Serious: No
  Sender: FDA-Public Use
  Company Number: 004699

PATIENT
  Age: 82 Year
  Sex: Male

DRUGS (4)
  1. PLETAL [Suspect]
     Indication: ARTERIOSCLEROSIS OBLITERANS
     Route: 048
     Dates: start: 20080201
  2. ANTIDIABETICS AGENTS (ANTIDIABETICS AGENTS) [Concomitant]
  3. INSULIN (INSULIN) [Concomitant]
  4. SYNTHETIC ANTIBACTERIALS (SYNTHETIC ANTIBACTERIALS) [Concomitant]

REACTIONS (7)
  - ANAEMIA [None]
  - COLD SWEAT [None]
  - EPIGASTRIC DISCOMFORT [None]
  - FALL [None]
  - HAEMORRHAGE SUBCUTANEOUS [None]
  - MUSCLE HAEMORRHAGE [None]
  - RENAL IMPAIRMENT [None]
